FAERS Safety Report 5390961-9 (Version None)
Quarter: 2007Q3

REPORT INFORMATION
  Report Type: 
  Country: None (occurrence: None)
  Receive Date: 20070716
  Receipt Date: 20070424
  Transmission Date: 20080115
  Serious: Yes (Hospitalization)
  Sender: FDA-Public Use
  Company Number: MPS1-10692

PATIENT
  Age: 14 Year
  Sex: Male
  Weight: 27.1 kg

DRUGS (8)
  1. ALDURAZYME [Suspect]
     Indication: MUCOPOLYSACCHARIDOSIS I
     Dosage: 0.58 MG/KG QWK IV
     Route: 042
     Dates: start: 20060720
  2. ADVAIR DISKUS 100/50 [Concomitant]
  3. ALBUTEROL [Concomitant]
  4. FLONASE. MFR: GLAXO LABORATORIES LIMITED [Concomitant]
  5. MIRALAX. MFR: BRAINTREE [Concomitant]
  6. ACETAMINOPHEN [Concomitant]
  7. BENADRYL. MFR: PARKE, DAVIS AND COMPANY [Concomitant]
  8. LOVENOX. MFR: PHARMUKA S.F. [Concomitant]

REACTIONS (7)
  - BLOOD PRESSURE DIASTOLIC DECREASED [None]
  - BODY TEMPERATURE DECREASED [None]
  - HEART RATE INCREASED [None]
  - POST PROCEDURAL COMPLICATION [None]
  - RESPIRATORY DISTRESS [None]
  - STRIDOR [None]
  - SUBCLAVIAN VEIN THROMBOSIS [None]
